FAERS Safety Report 6035371-6 (Version None)
Quarter: 2009Q1

REPORT INFORMATION
  Report Type: 
  Country: None (occurrence: None)
  Receive Date: 20090109
  Receipt Date: 20090109
  Transmission Date: 20090719
  Serious: Yes (Hospitalization)
  Sender: FDA-Public Use
  Company Number: None

PATIENT
  Age: 46 Year
  Sex: Male
  Weight: 77.5651 kg

DRUGS (4)
  1. SUNITINIB 37.5MG [Suspect]
     Indication: MALIGNANT MELANOMA
     Dosage: 37.5MG/DAILY, ORAL
     Route: 048
     Dates: start: 20080915, end: 20081008
  2. RADIATION THERAPY [Suspect]
     Dosage: 3GY FOLLOWED BY 2.5 GY
     Dates: start: 20080915, end: 20081008
  3. PERCOCET [Concomitant]
  4. ASPIRIN [Concomitant]

REACTIONS (6)
  - DECREASED APPETITE [None]
  - DEHYDRATION [None]
  - FEBRILE NEUTROPENIA [None]
  - FOOD INTOLERANCE [None]
  - HYPOPHAGIA [None]
  - MUCOSAL INFLAMMATION [None]
